FAERS Safety Report 7501909-2 (Version None)
Quarter: 2011Q2

REPORT INFORMATION
  Report Type: 
  Country: None (occurrence: None)
  Receive Date: 20110525
  Receipt Date: 20110519
  Transmission Date: 20111010
  Serious: Yes (Hospitalization)
  Sender: FDA-Public Use
  Company Number: JP-JNJFOC-20110406781

PATIENT
  Sex: Female
  Weight: 46 kg

DRUGS (9)
  1. NEUROVITAN [Concomitant]
     Indication: PROPHYLAXIS
     Route: 048
     Dates: start: 20110407
  2. DOXIL [Suspect]
     Indication: OVARIAN CANCER
     Route: 042
     Dates: start: 20110407, end: 20110407
  3. DOXIL [Suspect]
     Route: 042
     Dates: start: 20110519, end: 20110519
  4. CARBOPLATIN [Concomitant]
     Route: 041
  5. DERMOVATE [Concomitant]
     Indication: PRURITUS
     Route: 003
     Dates: start: 20110408
  6. KYTRIL [Concomitant]
     Indication: PRODUCT USED FOR UNKNOWN INDICATION
     Route: 065
     Dates: start: 20110407, end: 20110407
  7. MUCOSTA [Concomitant]
     Indication: PROPHYLAXIS
     Route: 048
     Dates: start: 20110407
  8. DECADRON [Concomitant]
     Indication: PRODUCT USED FOR UNKNOWN INDICATION
     Route: 065
     Dates: start: 20110407, end: 20110407
  9. AZUNOL [Concomitant]
     Indication: PROPHYLAXIS
     Route: 049
     Dates: start: 20110407

REACTIONS (1)
  - HYPONATRAEMIA [None]
